FAERS Safety Report 12338991 (Version 2)
Quarter: 2016Q2

REPORT INFORMATION
  Report Type: Spontaneous
  Country: US (occurrence: US)
  Receive Date: 20160505
  Receipt Date: 20160526
  Transmission Date: 20160815
  Serious: No
  Sender: FDA-Public Use
  Company Number: US-PFIZER INC-2016216857

PATIENT
  Age: 50 Year
  Sex: Female

DRUGS (1)
  1. PREMPRO [Suspect]
     Active Substance: ESTROGENS, CONJUGATED\MEDROXYPROGESTERONE ACETATE
     Indication: MENOPAUSE
     Dosage: UNK UNK, 1X/DAY (ESTROGENS CONJUGATED: 0.45 MG, MEDROXYPROGESTERONE ACETATE: 1.5 MG )
     Dates: start: 2006

REACTIONS (4)
  - Hot flush [Unknown]
  - Emotional disorder [Unknown]
  - Depression [Unknown]
  - Frustration tolerance decreased [Unknown]

NARRATIVE: CASE EVENT DATE: 2006
